FAERS Safety Report 13213832 (Version 2)
Quarter: 2017Q2

REPORT INFORMATION
  Report Type: Spontaneous
  Country: US (occurrence: US)
  Receive Date: 20170210
  Receipt Date: 20170511
  Transmission Date: 20170830
  Serious: No
  Sender: FDA-Public Use
  Company Number: US-GALDERMA-US17000368

PATIENT
  Age: 16 Year
  Sex: Female

DRUGS (1)
  1. EPIDUO FORTE [Suspect]
     Active Substance: ADAPALENE\BENZOYL PEROXIDE
     Indication: ACNE
     Route: 061

REACTIONS (3)
  - Skin irritation [Recovered/Resolved]
  - Application site dryness [Recovered/Resolved]
  - Application site erythema [Recovered/Resolved]
